FAERS Safety Report 11291552 (Version 1)
Quarter: 2015Q3

REPORT INFORMATION
  Report Type: Spontaneous
  Country: US (occurrence: None)
  Receive Date: 20150721
  Receipt Date: 20150721
  Transmission Date: 20151125
  Serious: Yes (Hospitalization)
  Sender: FDA-Public Use
  Company Number: None

PATIENT
  Age: 19 Year
  Sex: Male

DRUGS (10)
  1. AMOX/K CLAV [Concomitant]
  2. ONFI [Concomitant]
     Active Substance: CLOBAZAM
  3. CLONIDINE. [Concomitant]
     Active Substance: CLONIDINE
  4. SULFAMETOX [Concomitant]
  5. LAMOTRIGINE. [Concomitant]
     Active Substance: LAMOTRIGINE
  6. FERROUS SULFAT [Concomitant]
  7. LEVOCARNITIN [Concomitant]
  8. LEVOTHYROXIN [Concomitant]
     Active Substance: LEVOTHYROXINE
  9. MIRALAX [Concomitant]
     Active Substance: POLYETHYLENE GLYCOL 3350
  10. AFINITOR [Suspect]
     Active Substance: EVEROLIMUS
     Indication: BRAIN NEOPLASM MALIGNANT
     Route: 048
     Dates: start: 20130917

REACTIONS (1)
  - Life support [None]

NARRATIVE: CASE EVENT DATE: 201506
